FAERS Safety Report 6899661 (Version 14)
Quarter: 2013Q3

REPORT INFORMATION
  Report Type: Spontaneous
  Country: US (occurrence: US)
  Receive Date: 20090203
  Receipt Date: 20130816
  Transmission Date: 20140515
  Serious: Yes (Other)
  Sender: FDA-Public Use
  Company Number: PHEH2009US01137

PATIENT
  Age: 86 Year
  Sex: Female
  Weight: 69.84 kg

DRUGS (21)
  1. ZOMETA [Suspect]
     Dosage: 4MG
     Dates: start: 200406, end: 200509
  2. AREDIA [Suspect]
  3. TUMS [Concomitant]
  4. FEMARA [Concomitant]
     Dosage: 2.5 MG, QD
  5. VESICARE [Concomitant]
  6. DOCUSATE SODIUM [Concomitant]
  7. LETROZOLE [Concomitant]
  8. EXELON [Concomitant]
     Dates: end: 2008
  9. CIPRO ^MILES^ [Concomitant]
     Dosage: 500 MG, BID
  10. NEOSPORIN (NEOMYCIN SULFATE/POLYMYXIN B SULFATE) [Concomitant]
  11. BACTROBAN                               /UNK/ [Concomitant]
     Dates: start: 20040921
  12. DARVOCET-N [Concomitant]
     Dates: end: 20040826
  13. TYLENOL [Concomitant]
     Indication: PAIN
  14. BIAXIN [Concomitant]
     Dosage: 500 MG
  15. PHENERGAN WITH CODEINE [Concomitant]
     Dates: start: 20040714
  16. CLINDAMYCIN [Concomitant]
  17. TAMOXIFEN [Concomitant]
  18. FOSAMAX [Concomitant]
  19. KEFLEX                                  /UNK/ [Concomitant]
  20. FLOVENT [Concomitant]
  21. AMOXICILLIN [Concomitant]

REACTIONS (56)
  - Coronary artery disease [Unknown]
  - Cardiomegaly [Unknown]
  - Pneumonitis [Unknown]
  - Pleural fibrosis [Unknown]
  - Lung infiltration [Unknown]
  - Lung consolidation [Unknown]
  - Osteonecrosis of jaw [Unknown]
  - Osteomyelitis [Unknown]
  - Palatal oedema [Unknown]
  - Soft tissue inflammation [Unknown]
  - Primary sequestrum [Unknown]
  - Oral mucosal erythema [Unknown]
  - Purulent discharge [Unknown]
  - Loose tooth [Unknown]
  - Bone disorder [Unknown]
  - Tooth fracture [Unknown]
  - Endometrial hyperplasia [Unknown]
  - Lung disorder [Unknown]
  - Weight decreased [Unknown]
  - Obstructive airways disorder [Unknown]
  - Hiatus hernia [Unknown]
  - Hepatic lesion [Unknown]
  - Incontinence [Unknown]
  - Rib fracture [Unknown]
  - Deafness [Unknown]
  - Amnesia [Unknown]
  - Rectal haemorrhage [Unknown]
  - Anal sphincter atony [Unknown]
  - Anorectal disorder [Unknown]
  - Haematochezia [Unknown]
  - Cough [Recovered/Resolved]
  - Fatigue [Unknown]
  - Joint swelling [Unknown]
  - Postmenopause [Unknown]
  - Arthralgia [Unknown]
  - Thirst [Unknown]
  - Somnolence [Unknown]
  - Dyspepsia [Unknown]
  - Pollakiuria [Unknown]
  - Nocturia [Unknown]
  - Hypersomnia [Unknown]
  - Gastrointestinal haemorrhage [Unknown]
  - Nodule [Unknown]
  - Urinary tract infection [Unknown]
  - Cellulitis [Unknown]
  - Presbyacusis [Unknown]
  - Vomiting [Unknown]
  - Asthenia [Unknown]
  - Cold sweat [Unknown]
  - Balance disorder [Unknown]
  - Fall [Unknown]
  - Hepatic cyst [Unknown]
  - Appetite disorder [Unknown]
  - Dementia [Unknown]
  - Ingrowing nail [Unknown]
  - Arteriosclerosis [Unknown]
